FAERS Safety Report 5636170-7 (Version None)
Quarter: 2008Q1

REPORT INFORMATION
  Report Type: 
  Country: None (occurrence: None)
  Receive Date: 20080221
  Receipt Date: 20080221
  Transmission Date: 20080703
  Serious: No
  Sender: FDA-Public Use
  Company Number: None

PATIENT

DRUGS (2)
  1. VYTORIN [Suspect]
  2. ZETIA [Suspect]

REACTIONS (2)
  - PAIN IN EXTREMITY [None]
  - URTICARIA [None]
